FAERS Safety Report 9791059 (Version 2)
Quarter: 2014Q1

REPORT INFORMATION
  Report Type: Spontaneous
  Country: RS (occurrence: RS)
  Receive Date: 20131231
  Receipt Date: 20140109
  Transmission Date: 20141002
  Serious: Yes (Other)
  Sender: FDA-Public Use
  Company Number: RS-ALLERGAN-1320140US

PATIENT
  Age: 74 Year
  Sex: Male
  Weight: 90 kg

DRUGS (1)
  1. GANFORT 0.3/5 [Suspect]
     Indication: GLAUCOMA
     Dosage: 1X1
     Route: 047
     Dates: start: 20131121, end: 20131122

REACTIONS (7)
  - Conjunctivitis allergic [Recovered/Resolved]
  - Eyelid oedema [Recovered/Resolved]
  - Hypersensitivity [Recovered/Resolved]
  - Ocular hyperaemia [Recovered/Resolved]
  - Eye pruritus [Recovered/Resolved]
  - Lacrimation increased [Recovered/Resolved]
  - Conjunctival oedema [Recovered/Resolved]
